FAERS Safety Report 5032699-3 (Version None)
Quarter: 2006Q2

REPORT INFORMATION
  Report Type: 
  Country: None (occurrence: None)
  Receive Date: 20060622
  Receipt Date: 20051227
  Transmission Date: 20061013
  Serious: Yes (Hospitalization)
  Sender: FDA-Public Use
  Company Number: GB-AVENTIS-200610488GDDC

PATIENT
  Age: 77 Year
  Sex: Female
  Weight: 61 kg

DRUGS (9)
  1. LANTUS [Suspect]
     Indication: DIABETES MELLITUS
     Dosage: DOSE UNIT: UNITS
     Route: 058
     Dates: start: 20051101, end: 20051229
  2. CARBIMAZOLE [Concomitant]
  3. ISOSORBIDE MONONITRATE [Concomitant]
  4. FUROSEMIDE [Concomitant]
  5. SIMVASTATIN [Concomitant]
  6. CLOPIDOGREL [Concomitant]
  7. LANSOPRAZOLE [Concomitant]
  8. RAMIPRIL [Concomitant]
  9. AMLODIPINE [Concomitant]

REACTIONS (8)
  - BURNING SENSATION [None]
  - CLOSTRIDIAL INFECTION [None]
  - DYSPNOEA [None]
  - LEFT VENTRICULAR FAILURE [None]
  - RASH [None]
  - RED BLOOD CELL COUNT DECREASED [None]
  - RENAL FAILURE [None]
  - SKIN BURNING SENSATION [None]
